FAERS Safety Report 15849341 (Version 1)
Quarter: 2019Q1

REPORT INFORMATION
  Report Type: Spontaneous
  Country: GB (occurrence: GB)
  Receive Date: 20190121
  Receipt Date: 20190121
  Transmission Date: 20190417
  Serious: Yes (Other)
  Sender: FDA-Public Use
  Company Number: GB-TEVA-2019-GB-1001707

PATIENT
  Age: 75 Year
  Sex: Male

DRUGS (11)
  1. FOLIC ACID. [Concomitant]
     Active Substance: FOLIC ACID
  2. LISINOPRIL. [Concomitant]
     Active Substance: LISINOPRIL
  3. PYRIDOXINE [Concomitant]
     Active Substance: PYRIDOXINE
  4. INDAPAMIDE. [Suspect]
     Active Substance: INDAPAMIDE
     Indication: ESSENTIAL HYPERTENSION
     Dosage: 2.5 MILLIGRAM DAILY;
     Route: 048
     Dates: start: 20181204
  5. ATORVASTATIN [Concomitant]
     Active Substance: ATORVASTATIN
  6. PARACETAMOL [Concomitant]
     Active Substance: ACETAMINOPHEN
  7. QUININE SULFATE. [Concomitant]
     Active Substance: QUININE SULFATE
  8. CYANOCOBALAMIN. [Concomitant]
     Active Substance: CYANOCOBALAMIN
  9. FELODIPINE. [Suspect]
     Active Substance: FELODIPINE
     Route: 065
  10. ACETYLSALICYLIC ACID [Concomitant]
     Active Substance: ASPIRIN
  11. TAMSULOSIN HYDROCHLORIDE. [Concomitant]
     Active Substance: TAMSULOSIN HYDROCHLORIDE

REACTIONS (2)
  - Blood pressure diastolic increased [Not Recovered/Not Resolved]
  - Oedema peripheral [Not Recovered/Not Resolved]

NARRATIVE: CASE EVENT DATE: 20181226
